FAERS Safety Report 12092692 (Version 1)
Quarter: 2016Q1

REPORT INFORMATION
  Report Type: Spontaneous
  Country: GB (occurrence: GB)
  Receive Date: 20160219
  Receipt Date: 20160219
  Transmission Date: 20160526
  Serious: Yes (Death, Hospitalization)
  Sender: FDA-Public Use
  Company Number: GB-DRREDDYS-USA/UKI/16/0076501

PATIENT
  Age: 65 Year
  Sex: Male

DRUGS (2)
  1. ASPIRIN. [Suspect]
     Active Substance: ASPIRIN
     Indication: ANTIPLATELET THERAPY
     Route: 065
  2. CLOPIDOGREL [Suspect]
     Active Substance: CLOPIDOGREL BISULFATE
     Indication: ANTIPLATELET THERAPY
     Route: 065

REACTIONS (12)
  - Haemoglobin decreased [Unknown]
  - Dyspnoea [Unknown]
  - Pleural effusion [Unknown]
  - Haemoptysis [Recovering/Resolving]
  - Leukocytosis [Unknown]
  - Oxygen saturation decreased [Unknown]
  - Pulmonary haematoma [Recovering/Resolving]
  - Lung infection [Fatal]
  - Tachycardia [Unknown]
  - Hypotension [Unknown]
  - Chest pain [Unknown]
  - Tachypnoea [Unknown]
